FAERS Safety Report 9738516 (Version 2)
Quarter: 2013Q4

REPORT INFORMATION
  Report Type: Report from Study
  Country: AU (occurrence: AU)
  Receive Date: 20131209
  Receipt Date: 20131217
  Transmission Date: 20140711
  Serious: Yes (Hospitalization, Other)
  Sender: FDA-Public Use
  Company Number: AU-ROCHE-1315586

PATIENT
  Age: 74 Year
  Sex: Female

DRUGS (1)
  1. ACTEMRA [Suspect]
     Indication: RHEUMATOID ARTHRITIS
     Route: 042
     Dates: start: 20130415

REACTIONS (5)
  - Fall [Unknown]
  - Joint dislocation [Recovering/Resolving]
  - Pubis fracture [Recovering/Resolving]
  - Acetabulum fracture [Unknown]
  - Contusion [Unknown]
